FAERS Safety Report 19267981 (Version 1)
Quarter: 2021Q2

REPORT INFORMATION
  Report Type: Spontaneous
  Country: US (occurrence: US)
  Receive Date: 20210517
  Receipt Date: 20210517
  Transmission Date: 20210717
  Serious: No
  Sender: FDA-Public Use
  Company Number: US-BAYER-2021-136516

PATIENT
  Sex: Male

DRUGS (2)
  1. ALIQOPA [Suspect]
     Active Substance: COPANLISIB
     Indication: FOLLICULAR LYMPHOMA
     Dosage: 60 MG (FIRST INFUSION)
     Route: 042
     Dates: start: 20210426, end: 20210426
  2. ALIQOPA [Suspect]
     Active Substance: COPANLISIB
     Indication: FOLLICULAR LYMPHOMA
     Dosage: 60 MG (SECOND INFUSION)
     Route: 042
     Dates: start: 20210503, end: 20210503

REACTIONS (1)
  - Urticaria [Recovered/Resolved]

NARRATIVE: CASE EVENT DATE: 20210503
